FAERS Safety Report 6510288-9 (Version None)
Quarter: 2009Q4

REPORT INFORMATION
  Report Type: 
  Country: None (occurrence: None)
  Receive Date: 20091222
  Receipt Date: 20091005
  Transmission Date: 20100525
  Serious: No
  Sender: FDA-Public Use
  Company Number: US-ASTRAZENECA-2009SE18008

PATIENT
  Age: 20938 Day
  Sex: Female
  Weight: 64.4 kg

DRUGS (8)
  1. CRESTOR [Suspect]
     Indication: BLOOD CHOLESTEROL INCREASED
     Route: 048
     Dates: start: 20090926, end: 20091003
  2. NEXIUM [Suspect]
     Indication: REFLUX OESOPHAGITIS
     Route: 048
     Dates: start: 20080101
  3. QUINAPRIL [Concomitant]
     Indication: BLOOD PRESSURE
  4. LOVAZA [Concomitant]
  5. JANUMET [Concomitant]
     Indication: DIABETES MELLITUS
  6. ADLOPINE [Concomitant]
     Indication: BLOOD PRESSURE
  7. OMEGA 3 SUPPLEMENT [Concomitant]
  8. CELEXA [Concomitant]
     Indication: DEPRESSION

REACTIONS (4)
  - APHONIA [None]
  - DERMATITIS ALLERGIC [None]
  - PHARYNGEAL OEDEMA [None]
  - URTICARIA [None]
